FAERS Safety Report 5542571-8 (Version None)
Quarter: 2007Q4

REPORT INFORMATION
  Report Type: 
  Country: None (occurrence: None)
  Receive Date: 20071205
  Receipt Date: 20071205
  Transmission Date: 20080405
  Serious: No
  Sender: FDA-Public Use
  Company Number: None

PATIENT
  Age: 50 Year
  Sex: Female
  Weight: 55.7924 kg

DRUGS (1)
  1. CHANTIX [Suspect]
     Indication: SMOKING CESSATION THERAPY
     Dosage: 1 TABLET  TWICE DAILY  PO
     Route: 048
     Dates: start: 20071115, end: 20071204

REACTIONS (4)
  - CONFUSIONAL STATE [None]
  - CRYING [None]
  - DEPRESSED MOOD [None]
  - SUICIDAL IDEATION [None]
